FAERS Safety Report 4967794-8 (Version None)
Quarter: 2006Q2

REPORT INFORMATION
  Report Type: 
  Country: None (occurrence: None)
  Receive Date: 20060410
  Receipt Date: 20051004
  Transmission Date: 20061013
  Serious: Yes (Hospitalization, Disabling)
  Sender: FDA-Public Use
  Company Number: US-MERCK-0510USA03499

PATIENT
  Age: 60 Year
  Sex: Male
  Weight: 120 kg

DRUGS (1)
  1. VIOXX [Suspect]
     Indication: ARTHRITIS
     Route: 048
     Dates: start: 20031101, end: 20040804

REACTIONS (10)
  - CARDIAC DISORDER [None]
  - CARDIOVASCULAR DISORDER [None]
  - CATARACT [None]
  - CEREBRAL THROMBOSIS [None]
  - CORONARY ARTERY THROMBOSIS [None]
  - DEVICE FAILURE [None]
  - DYSPNOEA [None]
  - MEDICAL DEVICE COMPLICATION [None]
  - PLEURAL EFFUSION [None]
  - THROMBOSIS [None]
